FAERS Safety Report 10546170 (Version 2)
Quarter: 2014Q4

REPORT INFORMATION
  Report Type: Report from Study
  Country: US (occurrence: US)
  Receive Date: 20141027
  Receipt Date: 20141027
  Transmission Date: 20150529
  Serious: No
  Sender: FDA-Public Use
  Company Number: US-ABBVIE-14P-163-1203570-00

PATIENT
  Age: 41 Year
  Sex: Female
  Weight: 58.11 kg

DRUGS (5)
  1. MICROGESTIN [Concomitant]
     Active Substance: ETHINYL ESTRADIOL\NORETHINDRONE ACETATE
     Indication: PRODUCT USED FOR UNKNOWN INDICATION
  2. FROVA [Concomitant]
     Active Substance: FROVATRIPTAN SUCCINATE
     Indication: HEADACHE
  3. LUPRON DEPOT [Suspect]
     Active Substance: LEUPROLIDE ACETATE
     Indication: ENDOMETRIOSIS
     Dates: start: 20140204
  4. LUPRON DEPOT [Suspect]
     Active Substance: LEUPROLIDE ACETATE
     Dates: start: 20140204
  5. CLARITIN [Concomitant]
     Active Substance: LORATADINE
     Indication: PRODUCT USED FOR UNKNOWN INDICATION

REACTIONS (5)
  - Headache [Unknown]
  - Hot flush [Unknown]
  - Headache [Unknown]
  - Dyspareunia [Unknown]
  - Coital bleeding [Unknown]

NARRATIVE: CASE EVENT DATE: 20140211
